FAERS Safety Report 7555188-0 (Version None)
Quarter: 2011Q2

REPORT INFORMATION
  Report Type: 
  Country: None (occurrence: None)
  Receive Date: 20110617
  Receipt Date: 20110606
  Transmission Date: 20111010
  Serious: Yes (Other)
  Sender: FDA-Public Use
  Company Number: PHFR2011GB01932

PATIENT
  Sex: Female

DRUGS (14)
  1. VENLAFAXINE [Concomitant]
     Dosage: 225 MG/DAY
     Route: 048
  2. SIMVASTATIN [Concomitant]
     Indication: BLOOD CHOLESTEROL INCREASED
     Dosage: 10 MG/DAY
  3. ZOPICLONE [Concomitant]
     Dosage: 15 MG/DAY
  4. CLOZAPINE [Suspect]
     Dosage: 75 MG MANE, 125 MG NOCTE
     Route: 048
  5. TRAMADOL HCL [Concomitant]
     Dosage: 100 MG/DAY
     Route: 048
  6. PROCYCLIDINE HYDROCHLORIDE 2MG TAB [Concomitant]
     Dosage: 5 MG, PRN
     Route: 048
  7. CLOZAPINE [Suspect]
     Dosage: 350 MG/DAY
     Route: 048
     Dates: start: 20110301, end: 20110331
  8. HALOPERIDOL [Concomitant]
     Dosage: 5-10 MG, PRN
     Route: 048
  9. LORAZEPAM [Concomitant]
     Dosage: 1-2 MG, PRN
     Route: 048
  10. LACTULOSE [Concomitant]
     Dosage: 15 ML, PRN
     Route: 048
  11. CLOZAPINE [Suspect]
     Dosage: 75 MG MANE, 175 MG NOCTE
     Route: 048
  12. OMEPRAZOLE [Concomitant]
     Dosage: 20 MG/DAY
     Route: 048
  13. CLOZAPINE [Suspect]
     Indication: BORDERLINE PERSONALITY DISORDER
     Dosage: UNK MG, UNK
     Route: 048
     Dates: start: 20110216
  14. GAVISCON [Concomitant]
     Dosage: 10 ML, PRN
     Route: 048

REACTIONS (5)
  - LETHARGY [None]
  - FATIGUE [None]
  - ELECTROCARDIOGRAM QT PROLONGED [None]
  - PERSONALITY DISORDER [None]
  - CYANOSIS [None]
